FAERS Safety Report 7254357-7 (Version None)
Quarter: 2011Q1

REPORT INFORMATION
  Report Type: 
  Country: None (occurrence: None)
  Receive Date: 20110129
  Receipt Date: 20100121
  Transmission Date: 20110831
  Serious: No
  Sender: FDA-Public Use
  Company Number: US-ABBOTT-10P-163-0622086-00

PATIENT
  Weight: 69.008 kg

DRUGS (7)
  1. ENTOCORT EC [Suspect]
     Indication: PRODUCT USED FOR UNKNOWN INDICATION
     Dates: end: 20091221
  2. BIOTIN [Concomitant]
     Indication: ALOPECIA
     Dosage: UNKNOWN
  3. ACIPHEX [Suspect]
     Indication: GASTROOESOPHAGEAL REFLUX DISEASE
     Dosage: UNKNOWN
     Dates: start: 20070101
  4. COLAZAL [Suspect]
     Indication: PRODUCT USED FOR UNKNOWN INDICATION
     Dates: end: 20091221
  5. HUMIRA [Suspect]
     Indication: COLITIS
  6. FERROUS SULFATE TAB [Suspect]
     Indication: BLOOD IRON DECREASED
     Dates: start: 20091201
  7. HUMIRA [Suspect]
     Indication: CROHN'S DISEASE
     Dates: start: 20090601

REACTIONS (9)
  - OROPHARYNGEAL PAIN [None]
  - RESPIRATORY DISORDER [None]
  - WEIGHT INCREASED [None]
  - FAECES DISCOLOURED [None]
  - BLOOD IRON DECREASED [None]
  - SPIDER VEIN [None]
  - ALOPECIA [None]
  - NAUSEA [None]
  - VOMITING [None]
